FAERS Safety Report 8773587 (Version 2)
Quarter: 2012Q4

REPORT INFORMATION
  Report Type: Report from Study
  Country: DE (occurrence: DE)
  Receive Date: 20120907
  Receipt Date: 20121127
  Transmission Date: 20130627
  Serious: Yes (Hospitalization)
  Sender: FDA-Public Use
  Company Number: DE-ROCHE-1026895

PATIENT
  Age: 69 Year
  Sex: Male
  Weight: 96 kg

DRUGS (8)
  1. RITUXIMAB [Suspect]
     Indication: RHEUMATOID ARTHRITIS
     Route: 042
     Dates: start: 20110630
  2. PREDNISOLON [Concomitant]
     Indication: RHEUMATOID ARTHRITIS
     Dosage: Date of last dose prior to SAE: 19/Nov/2011
     Route: 048
  3. PREDNISOLON [Concomitant]
     Route: 042
  4. COTRIMOXAZOLE [Concomitant]
     Indication: ANTIFUNGAL PROPHYLAXIS
     Dosage: Date of last dose prior to SAE: 18/Nov/2011
     Route: 048
     Dates: start: 201108
  5. PANTOPRAZOL [Concomitant]
     Indication: PROPHYLAXIS
     Dosage: Date of last dose prior to SAE: 19/Nov/2011
     Route: 048
  6. ASS [Concomitant]
     Indication: CORONARY ARTERY DISEASE
     Dosage: Date of last dose prior to SAE: 19/Nov/2011
     Route: 048
  7. BISOPROLOL [Concomitant]
     Indication: HYPERTENSION
     Dosage: Date of last dose prior to SAE: 19/Nov/2011
     Route: 048
  8. SIMVASTATIN [Concomitant]
     Indication: HYPERCHOLESTEROLAEMIA
     Dosage: Date of last dose prior to SAE: 19/Nov/2011
     Route: 048

REACTIONS (6)
  - Rheumatoid arthritis [Recovered/Resolved]
  - Pathological fracture [Recovered/Resolved]
  - Hydropneumothorax [Recovered/Resolved with Sequelae]
  - Pneumothorax [Recovered/Resolved with Sequelae]
  - Cardiac failure [Recovered/Resolved with Sequelae]
  - Pleural haemorrhage [Recovered/Resolved with Sequelae]
